FAERS Safety Report 6424758-5 (Version None)
Quarter: 2009Q4

REPORT INFORMATION
  Report Type: 
  Country: None (occurrence: None)
  Receive Date: 20091030
  Receipt Date: 20091030
  Transmission Date: 20100525
  Serious: Yes (Hospitalization)
  Sender: FDA-Public Use
  Company Number: None

PATIENT
  Age: 66 Year
  Sex: Male

DRUGS (2)
  1. VERAPAMIL [Suspect]
     Indication: MIGRAINE
     Dosage: 180 MG EVERY DAY PO
     Route: 048
     Dates: start: 20080819, end: 20081009
  2. VERAPAMIL [Suspect]
     Indication: PROPHYLAXIS
     Dosage: 180 MG EVERY DAY PO
     Route: 048
     Dates: start: 20080819, end: 20081009

REACTIONS (7)
  - ANHEDONIA [None]
  - BRADYCARDIA [None]
  - FATIGUE [None]
  - HYPOTENSION [None]
  - SEDATION [None]
  - SYNCOPE [None]
  - WRONG DRUG ADMINISTERED [None]
